FAERS Safety Report 4314085-4 (Version None)
Quarter: 2004Q1

REPORT INFORMATION
  Report Type: 
  Country: None (occurrence: None)
  Receive Date: 20040308
  Receipt Date: 20040308
  Transmission Date: 20041129
  Serious: No
  Sender: FDA-Public Use
  Company Number: None

PATIENT
  Sex: Male
  Weight: 67 kg

DRUGS (4)
  1. IRON DEXTRAN [Suspect]
     Indication: BLOOD IRON DECREASED
     Dosage: 25MG ONCE INTRAVENOUS
     Route: 042
     Dates: start: 20031027, end: 20031027
  2. IRON DEXTRAN [Suspect]
     Indication: RENAL FAILURE
     Dosage: 25MG ONCE INTRAVENOUS
     Route: 042
     Dates: start: 20031027, end: 20031027
  3. EPOGEN [Concomitant]
  4. HEPARIN [Concomitant]

REACTIONS (3)
  - BLOOD PRESSURE DECREASED [None]
  - CHILLS [None]
  - DYSPNOEA [None]
